FAERS Safety Report 6772250-0 (Version None)
Quarter: 2010Q2

REPORT INFORMATION
  Report Type: 
  Country: None (occurrence: None)
  Receive Date: 20100616
  Receipt Date: 20090629
  Transmission Date: 20101027
  Serious: No
  Sender: FDA-Public Use
  Company Number: US-ASTRAZENECA-2009UW18187

PATIENT
  Age: 59 Year
  Sex: Female
  Weight: 90.7 kg

DRUGS (8)
  1. PULMICORT RESPULES [Suspect]
     Route: 055
     Dates: start: 20081101
  2. SYNTHROID [Concomitant]
  3. HCTZ [Concomitant]
  4. ZOCOR [Concomitant]
  5. OMEPRAZOLE [Concomitant]
  6. BROVANA [Concomitant]
  7. IPRATROPIUM [Concomitant]
  8. ALBUTEROL [Concomitant]

REACTIONS (2)
  - DRUG INEFFECTIVE [None]
  - DYSPNOEA [None]
